FAERS Safety Report 10661918 (Version 1)
Quarter: 2014Q4

REPORT INFORMATION
  Report Type: Spontaneous
  Country: JP (occurrence: JP)
  Receive Date: 20141218
  Receipt Date: 20141218
  Transmission Date: 20150529
  Serious: Yes (Hospitalization)
  Sender: FDA-Public Use
  Company Number: JP-009507513-1412JPN007689

PATIENT
  Age: 77 Year
  Sex: Male
  Weight: 43 kg

DRUGS (6)
  1. VANCOMYCIN HYDROCHLORIDE. [Concomitant]
     Active Substance: VANCOMYCIN HYDROCHLORIDE
     Indication: GASTROENTERITIS STAPHYLOCOCCAL
     Dosage: 500 MG, QID
     Route: 048
     Dates: start: 20140224
  2. CANCIDAS [Suspect]
     Active Substance: CASPOFUNGIN ACETATE
     Indication: ANTIFUNGAL PROPHYLAXIS
     Dosage: 50 MG, QD
     Route: 041
     Dates: start: 20140225, end: 20140226
  3. TEICOPLANIN [Concomitant]
     Active Substance: TEICOPLANIN
     Indication: STAPHYLOCOCCAL SEPSIS
     Dosage: 200 MG, BID
     Route: 051
     Dates: start: 20140224, end: 20140226
  4. CANCIDAS [Suspect]
     Active Substance: CASPOFUNGIN ACETATE
     Indication: ANTIFUNGAL PROPHYLAXIS
     Dosage: 70 MG, QD
     Route: 041
     Dates: start: 20140224, end: 20140224
  5. DAI-KENCHU-TO [Concomitant]
     Active Substance: MALTOSE
     Indication: CONSTIPATION
     Dosage: 2 DF, TID
     Route: 048
     Dates: start: 20140220
  6. MEROPEN [Concomitant]
     Active Substance: MEROPENEM
     Indication: PHARYNGITIS
     Dosage: 0.5 G, BID
     Route: 051
     Dates: start: 20140222

REACTIONS (1)
  - C-reactive protein increased [Recovering/Resolving]

NARRATIVE: CASE EVENT DATE: 20140225
